FAERS Safety Report 15394486 (Version 1)
Quarter: 2018Q3

REPORT INFORMATION
  Report Type: Spontaneous
  Country: GB (occurrence: GB)
  Receive Date: 20180918
  Receipt Date: 20180918
  Transmission Date: 20181010
  Serious: Yes (Hospitalization)
  Sender: FDA-Public Use
  Company Number: GB-TEVA-2018-GB-955781

PATIENT
  Age: 67 Year
  Sex: Male
  Weight: 79.82 kg

DRUGS (2)
  1. NAPROXEN. [Suspect]
     Active Substance: NAPROXEN
     Indication: ARTHRALGIA
     Dosage: 2 DOSAGE FORMS DAILY; FIRST MONTH 2 X TABLETS DAILY, THEN AS / WHEN FELT NECESSARY TO RELIEVE ARTHRI
     Route: 048
     Dates: start: 201709, end: 201710
  2. NAPROXEN. [Suspect]
     Active Substance: NAPROXEN
     Dosage: FIRST MONTH 2 X TABLETS DAILY, THEN AS / WHEN FELT NECESSARY TO RELIEVE ARTHRITIS PAIN
     Route: 048
     Dates: start: 201710, end: 201807

REACTIONS (3)
  - Hypoaesthesia [Not Recovered/Not Resolved]
  - Guillain-Barre syndrome [Not Recovered/Not Resolved]
  - Paraesthesia [Not Recovered/Not Resolved]

NARRATIVE: CASE EVENT DATE: 20180618
